FAERS Safety Report 5132836-6 (Version None)
Quarter: 2006Q4

REPORT INFORMATION
  Report Type: 
  Country: None (occurrence: None)
  Receive Date: 20061023
  Receipt Date: 20061013
  Transmission Date: 20070319
  Serious: Yes (Death, Hospitalization)
  Sender: FDA-Public Use
  Company Number: JP-JNJFOC-20060605836

PATIENT
  Sex: Female
  Weight: 37 kg

DRUGS (11)
  1. REMICADE [Suspect]
     Route: 042
  2. REMICADE [Suspect]
     Route: 042
  3. REMICADE [Suspect]
     Indication: RHEUMATOID ARTHRITIS
     Route: 042
  4. RHEUMATREX [Suspect]
     Route: 048
  5. RHEUMATREX [Suspect]
     Indication: RHEUMATOID ARTHRITIS
     Route: 048
  6. BETAMETHASONE SODIUM PHOSPHATE [Suspect]
     Route: 048
  7. BETAMETHASONE SODIUM PHOSPHATE [Suspect]
     Indication: RHEUMATOID ARTHRITIS
     Route: 048
  8. TAGAMET [Concomitant]
  9. BONALON [Concomitant]
     Indication: OSTEOPOROSIS
     Route: 048
  10. FOLIAMIN [Concomitant]
     Indication: PROPHYLAXIS
     Route: 048
  11. MOHRUS TAPE [Concomitant]
     Dosage: RIGHT EYE
     Route: 047

REACTIONS (1)
  - INTERSTITIAL LUNG DISEASE [None]
